FAERS Safety Report 9518223 (Version 1)
Quarter: 2013Q3

REPORT INFORMATION
  Report Type: Spontaneous
  Country: GB (occurrence: None)
  Receive Date: 20130910
  Receipt Date: 20130910
  Transmission Date: 20140515
  Serious: Yes (Life-Threatening, Disabling, Other)
  Sender: FDA-Public Use
  Company Number: AUR-APL-2013-07376

PATIENT
  Age: 26 Year
  Sex: Male
  Weight: 70 kg

DRUGS (1)
  1. RISPERIDONE [Suspect]
     Indication: DELUSIONAL DISORDER, UNSPECIFIED TYPE
     Route: 048
     Dates: start: 20090601, end: 20130210

REACTIONS (14)
  - Hypertension [None]
  - Cardiac disorder [None]
  - Motor dysfunction [None]
  - Speech disorder [None]
  - Memory impairment [None]
  - Cognitive disorder [None]
  - Mental impairment [None]
  - Headache [None]
  - Tachycardia [None]
  - Disorientation [None]
  - Sedation [None]
  - Dissociation [None]
  - Communication disorder [None]
  - Withdrawal syndrome [None]
